FAERS Safety Report 22927207 (Version 2)
Quarter: 2024Q3

REPORT INFORMATION
  Report Type: Spontaneous
  Country: US (occurrence: US)
  Receive Date: 20230911
  Receipt Date: 20240923
  Transmission Date: 20241017
  Serious: No
  Sender: CIPLA
  Company Number: US-CIPLA LTD.-2023US02515

PATIENT

DRUGS (17)
  1. ALENDRONATE [Suspect]
     Active Substance: ALENDRONATE SODIUM
     Indication: Sciatica
     Dosage: 70 MILLIGRAM ONCE A WEEK ON WEDNESDAY
     Route: 065
     Dates: start: 202303
  2. DICLOFENAC [Suspect]
     Active Substance: DICLOFENAC
     Indication: Sciatica
     Dosage: 75 MILLIGRAM, BID (AS NEEDED)
     Route: 065
  3. GLUCOSAMINE [Concomitant]
     Active Substance: GLUCOSAMINE
     Indication: Arthropathy
     Dosage: 1500 MILLIGRAM, QD (ONCE A DAY)
     Route: 065
  4. GINKGO [Concomitant]
     Active Substance: GINKGO
     Indication: Product used for unknown indication
     Dosage: 120 MILLIGRAM, BID (TWO DOSES PER DAY EVERY MORNING AND EVENING)
     Route: 065
  5. ZINC [Concomitant]
     Active Substance: ZINC
     Indication: Supplementation therapy
     Dosage: 50 MILLIGRAM, TWICE OR THRICE A DAY
     Route: 065
  6. VITAMIN C [Concomitant]
     Active Substance: ASCORBIC ACID
     Indication: Product used for unknown indication
     Dosage: 1000 MILLIGRAM, QD (IN THE AFTERNOON)
     Route: 065
  7. VITAMIN B COMPLEX [Concomitant]
     Active Substance: CYANOCOBALAMIN\DEXPANTHENOL\NIACINAMIDE\PYRIDOXINE HYDROCHLORIDE\RIBOFLAVIN 5^-PHOSPHATE SODIUM\THIA
     Indication: Product used for unknown indication
     Dosage: UNK, QD (MIDDLE OF THE DAY)
     Route: 065
  8. BIOTIN [Concomitant]
     Active Substance: BIOTIN
     Indication: Product used for unknown indication
     Dosage: 10000 MICROGRAM, QD (IN AFTERNOON)
     Route: 065
  9. HERBALS\TURMERIC [Concomitant]
     Active Substance: HERBALS\TURMERIC
     Indication: Product used for unknown indication
     Dosage: 10000 MILLIGRAM, QD (IN THE AFTERNOON)
     Route: 065
  10. TRIPLE OMEGA 3 6 9 [Concomitant]
     Indication: Liver disorder
     Dosage: UNK, PRN (AS NEEDED BUT NOT EVERYDAY)
     Route: 065
  11. PRULAX [Concomitant]
     Indication: Abdominal discomfort
     Dosage: UNK, QD (400 MG + 400 MG / ONE + A HALF TABLET ONCE A DAY)
     Route: 065
  12. MAGNESIUM [Concomitant]
     Active Substance: MAGNESIUM
     Indication: Product used for unknown indication
     Dosage: 400 MILLIGRAM, BID (TWO DOSES PER DAY, EVERY MORNING AND EVENING)
     Route: 065
  13. SYNTHROID [Concomitant]
     Active Substance: LEVOTHYROXINE SODIUM
     Indication: Product used for unknown indication
     Dosage: 75 MICROGRAM, QD (ONCE A DAY IN THE MORNING)
     Route: 065
     Dates: start: 1983
  14. METHOCARBAMOL [Concomitant]
     Active Substance: METHOCARBAMOL
     Indication: Muscle spasms
     Dosage: 500 MILLIGRAM, BID (TWICE A DAY AS NEEDED BY MOUTH)
     Route: 048
  15. COLLAGEN [Concomitant]
     Active Substance: COLLAGEN
     Indication: Bone disorder
     Dosage: UNK
     Route: 065
  16. COLLAGEN [Concomitant]
     Active Substance: COLLAGEN
     Indication: Hair disorder
  17. ASPIRIN [Concomitant]
     Active Substance: ASPIRIN
     Indication: Analgesic therapy
     Dosage: UNK
     Route: 065

REACTIONS (3)
  - Amnesia [Not Recovered/Not Resolved]
  - Off label use [Unknown]
  - Drug ineffective for unapproved indication [Unknown]

NARRATIVE: CASE EVENT DATE: 20230301
